FAERS Safety Report 16270228 (Version 1)
Quarter: 2019Q2

REPORT INFORMATION
  Report Type: Spontaneous
  Country: US (occurrence: US)
  Receive Date: 20190329
  Receipt Date: 20190329
  Transmission Date: 20190711
  Serious: Yes (Other)
  Sender: FDA-Public Use
  Company Number: None

PATIENT
  Age: 69 Year
  Sex: Female
  Weight: 55.79 kg

DRUGS (6)
  1. METOPROLOL SUCCINATE ER [Concomitant]
     Active Substance: METOPROLOL SUCCINATE
  2. ATORVASTATIN ER [Suspect]
     Active Substance: ATORVASTATIN
     Indication: BLOOD CHOLESTEROL INCREASED
     Dosage: ?          QUANTITY:10 MG MILLIGRAM(S);?
     Route: 048
     Dates: start: 20170420, end: 20170722
  3. EMERGEN C [Concomitant]
     Active Substance: MINERALS\VITAMINS
  4. CHEWABLE ASPIRIN [Concomitant]
     Active Substance: ASPIRIN
  5. VERAPAMIL ER [Concomitant]
     Active Substance: VERAPAMIL HYDROCHLORIDE
  6. ROSUVASTATIN. [Concomitant]
     Active Substance: ROSUVASTATIN

REACTIONS (16)
  - Blepharospasm [None]
  - Dry skin [None]
  - Syncope [None]
  - Migraine with aura [None]
  - Eye pain [None]
  - Contusion [None]
  - Myalgia [None]
  - Dehydration [None]
  - Malaise [None]
  - Pain [None]
  - Lip dry [None]
  - Diarrhoea [None]
  - Muscle spasms [None]
  - Nausea [None]
  - Decreased appetite [None]
  - Vein disorder [None]

NARRATIVE: CASE EVENT DATE: 20170428
